FAERS Safety Report 14142318 (Version 1)
Quarter: 2017Q4

REPORT INFORMATION
  Report Type: Spontaneous
  Country: US (occurrence: US)
  Receive Date: 20171030
  Receipt Date: 20171030
  Transmission Date: 20180321
  Serious: Yes (Hospitalization)
  Sender: FDA-Public Use
  Company Number: US-LANNETT COMPANY, INC.-US-2017LAN001149

PATIENT
  Age: 22 Year
  Sex: Female

DRUGS (2)
  1. BACTRIM BALSAMICO [Concomitant]
     Indication: RASH
     Dosage: UNK
  2. DOXYCYCLINE. [Suspect]
     Active Substance: DOXYCYCLINE
     Indication: RASH
     Dosage: UNK
     Route: 065

REACTIONS (1)
  - Hypereosinophilic syndrome [Recovering/Resolving]
